FAERS Safety Report 6362897-8 (Version None)
Quarter: 2009Q3

REPORT INFORMATION
  Report Type: 
  Country: None (occurrence: None)
  Receive Date: 20090919
  Receipt Date: 20090615
  Transmission Date: 20100115
  Serious: Yes (Hospitalization, Disabling)
  Sender: FDA-Public Use
  Company Number: US-ABBOTT-09P-163-0579900-00

PATIENT
  Sex: Female
  Weight: 99.88 kg

DRUGS (3)
  1. HUMIRA [Suspect]
     Indication: COLITIS ULCERATIVE
     Route: 058
     Dates: start: 20081201, end: 20090101
  2. HUMIRA [Suspect]
     Route: 058
     Dates: start: 20090415, end: 20090511
  3. HUMIRA [Suspect]
     Route: 058
     Dates: start: 20090602

REACTIONS (6)
  - ABDOMINAL PAIN [None]
  - COLITIS ULCERATIVE [None]
  - DIZZINESS [None]
  - LOWER RESPIRATORY TRACT INFECTION [None]
  - NEPHROLITHIASIS [None]
  - SYNCOPE [None]
